FAERS Safety Report 12411129 (Version 5)
Quarter: 2016Q4

REPORT INFORMATION
  Report Type: Report from Study
  Country: US (occurrence: US)
  Receive Date: 20160527
  Receipt Date: 20161004
  Transmission Date: 20170207
  Serious: Yes (Life-Threatening, Hospitalization)
  Sender: FDA-Public Use
  Company Number: US-EISAI MEDICAL RESEARCH-EC-2016-016785

PATIENT
  Age: 52 Year
  Sex: Female
  Weight: 117.03 kg

DRUGS (3)
  1. LENVIMA [Suspect]
     Active Substance: LENVATINIB
     Route: 048
     Dates: start: 2016, end: 20160701
  2. LENVIMA [Suspect]
     Active Substance: LENVATINIB
     Indication: THYROID CANCER
     Route: 048
     Dates: start: 20160503, end: 201605
  3. LENVIMA [Suspect]
     Active Substance: LENVATINIB
     Route: 048
     Dates: start: 20160702

REACTIONS (16)
  - Contusion [Recovered/Resolved]
  - Tremor [Not Recovered/Not Resolved]
  - Oral pain [Recovered/Resolved]
  - Weight decreased [Not Recovered/Not Resolved]
  - Seizure [Recovered/Resolved]
  - Blood potassium decreased [Not Recovered/Not Resolved]
  - Nausea [Not Recovered/Not Resolved]
  - Abdominal discomfort [Not Recovered/Not Resolved]
  - Insomnia [Not Recovered/Not Resolved]
  - Diarrhoea [Recovering/Resolving]
  - Decreased appetite [Recovered/Resolved]
  - Fall [Recovered/Resolved]
  - Hypocalcaemia [Unknown]
  - Oral mucosal blistering [Recovered/Resolved]
  - Vomiting [Not Recovered/Not Resolved]
  - Malaise [Unknown]

NARRATIVE: CASE EVENT DATE: 201605
